FAERS Safety Report 13638794 (Version 1)
Quarter: 2017Q2

REPORT INFORMATION
  Report Type: Spontaneous
  Country: GR (occurrence: GR)
  Receive Date: 20170609
  Receipt Date: 20170609
  Transmission Date: 20170830
  Serious: Yes (Hospitalization)
  Sender: FDA-Public Use
  Company Number: GR-FRESENIUS KABI-FK201705024

PATIENT
  Age: 16 Year
  Sex: Male
  Weight: 75 kg

DRUGS (5)
  1. NALOXONE [Suspect]
     Active Substance: NALOXONE
     Indication: PRODUCT USED FOR UNKNOWN INDICATION
     Route: 065
  2. FENTANYL. [Concomitant]
     Active Substance: FENTANYL
     Indication: ANALGESIC THERAPY
     Route: 065
  3. MORPHINE [Concomitant]
     Active Substance: MORPHINE
     Indication: ANALGESIC THERAPY
  4. TRANEXAMIC ACID. [Concomitant]
     Active Substance: TRANEXAMIC ACID
     Indication: PRODUCT USED FOR UNKNOWN INDICATION
  5. FLUMAZENIL (MANUFACTURER UNKNOWN) [Suspect]
     Active Substance: FLUMAZENIL
     Indication: ANAESTHESIA REVERSAL
     Route: 065

REACTIONS (2)
  - Dyspnoea [Recovered/Resolved]
  - Acute pulmonary oedema [Recovered/Resolved]
